FAERS Safety Report 12479499 (Version 1)
Quarter: 2016Q2

REPORT INFORMATION
  Report Type: Spontaneous
  Country: US (occurrence: None)
  Receive Date: 20160617
  Receipt Date: 20160617
  Transmission Date: 20160815
  Serious: No
  Sender: FDA-Public Use
  Company Number: None

PATIENT
  Age: 38 Year
  Sex: Female

DRUGS (9)
  1. APAP/CODEINE [Concomitant]
     Active Substance: ACETAMINOPHEN\CODEINE PHOSPHATE
  2. ACYCLOVIR. [Concomitant]
     Active Substance: ACYCLOVIR
  3. FLUOXETINE [Concomitant]
     Active Substance: FLUOXETINE HYDROCHLORIDE
  4. SPIRONOLACT [Concomitant]
  5. RESTASIS [Concomitant]
     Active Substance: CYCLOSPORINE
  6. HYDROXYCHLOR [Concomitant]
     Active Substance: HYDROXYCHLOROQUINE
  7. ENBREL [Suspect]
     Active Substance: ETANERCEPT
     Indication: RHEUMATOID ARTHRITIS
     Route: 058
     Dates: start: 20100210
  8. IBUPROFEN. [Concomitant]
     Active Substance: IBUPROFEN
  9. PLAQUENIL [Concomitant]
     Active Substance: HYDROXYCHLOROQUINE SULFATE

REACTIONS (1)
  - Condition aggravated [None]
